FAERS Safety Report 6265438-9 (Version None)
Quarter: 2009Q3

REPORT INFORMATION
  Report Type: 
  Country: None (occurrence: None)
  Receive Date: 20090713
  Receipt Date: 20090703
  Transmission Date: 20100115
  Serious: Yes (Life-Threatening)
  Sender: FDA-Public Use
  Company Number: JP-NOVOPROD-287884

PATIENT
  Age: 85 Year
  Sex: Female
  Weight: 44 kg

DRUGS (7)
  1. NOVORAPID CHU [Suspect]
     Indication: TYPE 2 DIABETES MELLITUS
     Dosage: 30 U, QD
     Route: 042
     Dates: start: 20090403, end: 20090511
  2. NOVOLIN R [Suspect]
     Indication: TYPE 2 DIABETES MELLITUS
     Dosage: 30 U, QD
     Route: 042
     Dates: start: 20090511, end: 20090613
  3. KN-MG3 [Concomitant]
     Dosage: 500 ML, QD
     Route: 042
     Dates: start: 20090403, end: 20090613
  4. POTACOL-R [Concomitant]
     Dosage: 500 ML, QD
     Route: 042
     Dates: start: 20090403, end: 20090612
  5. TWINPAL [Concomitant]
     Dosage: 500 ML, QD
     Route: 042
     Dates: start: 20090420, end: 20090611
  6. SODIUM CHLORIDE [Concomitant]
     Dosage: 500 ML, QD
     Route: 042
     Dates: start: 20090403, end: 20090420
  7. GLYCEREB [Concomitant]
     Dosage: 400 ML, QD
     Route: 042
     Dates: start: 20090403, end: 20090408

REACTIONS (1)
  - PLATELET COUNT DECREASED [None]
